FAERS Safety Report 6713228-2 (Version None)
Quarter: 2010Q2

REPORT INFORMATION
  Report Type: 
  Country: None (occurrence: None)
  Receive Date: 20100506
  Receipt Date: 20100430
  Transmission Date: 20101027
  Serious: Yes (Death)
  Sender: FDA-Public Use
  Company Number: PHEH2010US03216

PATIENT
  Age: 53 Year
  Sex: Female
  Weight: 111 kg

DRUGS (4)
  1. EXJADE [Suspect]
     Indication: THROMBOCYTOPENIA
     Dosage: 600 MG, QD
     Route: 048
     Dates: start: 20080314, end: 20100301
  2. EXJADE [Suspect]
     Indication: IRON OVERLOAD
     Dosage: 2000 MG, BID
     Route: 048
  3. DILAUDID [Concomitant]
  4. TRAZODONE HCL [Concomitant]

REACTIONS (8)
  - ALANINE AMINOTRANSFERASE INCREASED [None]
  - ASPARTATE AMINOTRANSFERASE INCREASED [None]
  - BLOOD CREATININE INCREASED [None]
  - CARDIAC FAILURE [None]
  - HEPATIC FAILURE [None]
  - HEPATITIS C [None]
  - IRON OVERLOAD [None]
  - SICKLE CELL ANAEMIA WITH CRISIS [None]
